FAERS Safety Report 19471083 (Version 3)
Quarter: 2021Q3

REPORT INFORMATION
  Report Type: Spontaneous
  Country: US (occurrence: US)
  Receive Date: 20210628
  Receipt Date: 20210830
  Transmission Date: 20211014
  Serious: Yes (Hospitalization, Other)
  Sender: FDA-Public Use
  Company Number: US-ELI_LILLY_AND_COMPANY-US202106009413

PATIENT
  Age: 68 Year
  Sex: Female
  Weight: 64.85 kg

DRUGS (2)
  1. FORTEO [Suspect]
     Active Substance: TERIPARATIDE
     Indication: OSTEOPOROSIS
     Dosage: 20 UG, DAILY
     Route: 058
     Dates: start: 20190709
  2. FORTEO [Suspect]
     Active Substance: TERIPARATIDE
     Dosage: 20 UNK, UNKNOWN
     Route: 058
     Dates: end: 20210708

REACTIONS (2)
  - Temporomandibular joint syndrome [Not Recovered/Not Resolved]
  - Pulmonary embolism [Recovering/Resolving]

NARRATIVE: CASE EVENT DATE: 20210526
